FAERS Safety Report 7779159-4 (Version None)
Quarter: 2011Q3

REPORT INFORMATION
  Report Type: 
  Country: None (occurrence: None)
  Receive Date: 20110926
  Receipt Date: 20110913
  Transmission Date: 20111222
  Serious: Yes (Other)
  Sender: FDA-Public Use
  Company Number: CA-ELI_LILLY_AND_COMPANY-CA201109003247

PATIENT
  Sex: Male

DRUGS (8)
  1. SERZONE [Concomitant]
  2. ZYPREXA [Suspect]
     Dosage: 10 MG, UNK
  3. FLUANXOL [Concomitant]
  4. BENZTROPINE MESYLATE [Concomitant]
  5. ZYPREXA [Suspect]
     Dosage: 2.5 MG, UNK
  6. ZYPREXA [Suspect]
     Dosage: 5 MG, UNK
  7. ZYPREXA [Suspect]
     Dosage: 7.5 MG, UNK
  8. LORAZEPAM [Concomitant]

REACTIONS (12)
  - ASTHENIA [None]
  - CONFUSIONAL STATE [None]
  - BONE PAIN [None]
  - NEPHROPATHY [None]
  - JUDGEMENT IMPAIRED [None]
  - DIABETES MELLITUS [None]
  - MEMORY IMPAIRMENT [None]
  - FATIGUE [None]
  - RENAL FAILURE [None]
  - DEPRESSED MOOD [None]
  - ANGINA PECTORIS [None]
  - RENAL PAIN [None]
